FAERS Safety Report 6042135-6 (Version None)
Quarter: 2009Q1

REPORT INFORMATION
  Report Type: 
  Country: None (occurrence: None)
  Receive Date: 20090116
  Receipt Date: 20090114
  Transmission Date: 20090719
  Serious: Yes (Death, Other)
  Sender: FDA-Public Use
  Company Number: PHBS2009GB00501

PATIENT
  Age: 37 Year
  Sex: Male

DRUGS (4)
  1. CYCLOSPORINE [Suspect]
     Indication: STEM CELL TRANSPLANT
  2. CYCLOPHOSPHAMIDE [Concomitant]
     Dosage: 1200 MG/M2
  3. FLUDARABINE [Concomitant]
     Indication: STEM CELL TRANSPLANT
     Dosage: 120 MG/M2
  4. ATGAM [Concomitant]
     Indication: STEM CELL TRANSPLANT

REACTIONS (2)
  - ACUTE GRAFT VERSUS HOST DISEASE [None]
  - EPSTEIN-BARR VIRUS INFECTION [None]
